FAERS Safety Report 15987085 (Version 2)
Quarter: 2021Q2

REPORT INFORMATION
  Report Type: Spontaneous
  Country: DE (occurrence: DE)
  Receive Date: 20190220
  Receipt Date: 20210406
  Transmission Date: 20210716
  Serious: Yes (Hospitalization)
  Sender: FDA-Public Use
  Company Number: DE-PFIZER INC-2019070313

PATIENT
  Age: 14 Year
  Sex: Female
  Weight: 71 kg

DRUGS (3)
  1. NOVALGIN (METAMIZOLE SODIUM) [Suspect]
     Active Substance: METAMIZOLE SODIUM
     Indication: PRODUCT USED FOR UNKNOWN INDICATION
     Dosage: 1000 MG, QD(DAILY DOSE: 1000 MG MILLGRAM(S) EVERY DAYS)
     Route: 048
     Dates: start: 20180726, end: 20180726
  2. IBUPROFEN. [Suspect]
     Active Substance: IBUPROFEN
     Indication: PRODUCT USED FOR UNKNOWN INDICATION
     Dosage: 10200 MG, QD(DAILY DOSE: 10200 MG MILLGRAM(S) EVERY DAYS)
     Route: 048
     Dates: start: 20180726, end: 20180726
  3. VALORON N [Suspect]
     Active Substance: NALOXONE HYDROCHLORIDE\TILIDINE HYDROCHLORIDE
     Indication: PRODUCT USED FOR UNKNOWN INDICATION
     Dosage: 4 DF, QD(DAILY DOSE: 4 DF DOSAGE FORM EVERY DAYS)
     Route: 048
     Dates: start: 20180726, end: 20180726

REACTIONS (5)
  - Toxicity to various agents [Recovered/Resolved]
  - Dizziness [Recovered/Resolved]
  - Abdominal pain [Recovered/Resolved]
  - Vomiting [Recovered/Resolved]
  - Nausea [Recovered/Resolved]

NARRATIVE: CASE EVENT DATE: 20180726
